FAERS Safety Report 4766085-8 (Version None)
Quarter: 2005Q3

REPORT INFORMATION
  Report Type: 
  Country: None (occurrence: None)
  Receive Date: 20050912
  Receipt Date: 20050901
  Transmission Date: 20060218
  Serious: Yes (Hospitalization)
  Sender: FDA-Public Use
  Company Number: US-MERCK-0509USA01049

PATIENT
  Age: 56 Year
  Sex: Male
  Weight: 93 kg

DRUGS (6)
  1. PRINIVIL [Suspect]
     Indication: HYPERTENSION
     Route: 048
     Dates: start: 20030526, end: 20030526
  2. METOPROLOL [Suspect]
     Route: 065
  3. PLAVIX [Suspect]
     Route: 065
  4. NIASPAN [Suspect]
     Route: 065
  5. TYLENOL [Suspect]
     Route: 065
  6. NITROGLYCERIN [Suspect]
     Route: 065

REACTIONS (3)
  - GASTROINTESTINAL HAEMORRHAGE [None]
  - HAEMATOCHEZIA [None]
  - ULCER [None]
